FAERS Safety Report 18851666 (Version 1)
Quarter: 2021Q1

REPORT INFORMATION
  Report Type: Spontaneous
  Country: US (occurrence: US)
  Receive Date: 20210204
  Receipt Date: 20210204
  Transmission Date: 20210420
  Serious: Yes (Hospitalization)
  Sender: FDA-Public Use
  Company Number: None

PATIENT
  Age: 82 Year
  Sex: Male

DRUGS (7)
  1. SILDENAFIL 20MG TAB [Suspect]
     Active Substance: SILDENAFIL
     Indication: RAYNAUD^S PHENOMENON
     Route: 048
     Dates: start: 20201015
  2. SIMVASTATIN. [Concomitant]
     Active Substance: SIMVASTATIN
  3. OMEPRAZOLE. [Concomitant]
     Active Substance: OMEPRAZOLE
  4. PILOCARPINE. [Concomitant]
     Active Substance: PILOCARPINE
  5. HYDROCO/APAP [Concomitant]
     Active Substance: ACETAMINOPHEN\HYDROCODONE
  6. NEO/POLY/HC [Concomitant]
     Active Substance: HYDROCORTISONE\NEOMYCIN\POLYMYXIN B SULFATE
  7. LEFLUNOMIDE. [Concomitant]
     Active Substance: LEFLUNOMIDE

REACTIONS (1)
  - Nail discolouration [None]

NARRATIVE: CASE EVENT DATE: 20210204
